FAERS Safety Report 5696443-9 (Version None)
Quarter: 2008Q2

REPORT INFORMATION
  Report Type: 
  Country: None (occurrence: None)
  Receive Date: 20080408
  Receipt Date: 20080331
  Transmission Date: 20081010
  Serious: Yes (Hospitalization, Other)
  Sender: FDA-Public Use
  Company Number: BR-ABBOTT-08P-020-0445003-00

PATIENT
  Sex: Female

DRUGS (1)
  1. HUMIRA [Suspect]
     Indication: RHEUMATOID ARTHRITIS
     Route: 058
     Dates: start: 20071201

REACTIONS (6)
  - CEREBROVASCULAR ACCIDENT [None]
  - FALL [None]
  - HIP FRACTURE [None]
  - ILL-DEFINED DISORDER [None]
  - MUSCULOSKELETAL DISORDER [None]
  - SURGERY [None]
